FAERS Safety Report 9165586 (Version 1)
Quarter: 2013Q1

REPORT INFORMATION
  Report Type: Report from Study
  Country: US (occurrence: US)
  Receive Date: 20130315
  Receipt Date: 20130315
  Transmission Date: 20140127
  Serious: Yes (Other)
  Sender: FDA-Public Use
  Company Number: US-JNJFOC-20130304011

PATIENT
  Sex: 0

DRUGS (2)
  1. REMICADE [Suspect]
     Indication: RHEUMATOID ARTHRITIS
     Route: 042
  2. REMICADE [Suspect]
     Indication: RHEUMATOID ARTHRITIS
     Dosage: STARTED IN OCT (YEAR NOT REPORTED)
     Route: 042

REACTIONS (6)
  - Pleurisy [Unknown]
  - Adverse drug reaction [Unknown]
  - Viral infection [Unknown]
  - Gastroenteritis norovirus [Unknown]
  - Influenza [Unknown]
  - Oropharyngeal pain [Unknown]
